FAERS Safety Report 25749936 (Version 3)
Quarter: 2025Q4

REPORT INFORMATION
  Report Type: Report from Study
  Country: US (occurrence: US)
  Receive Date: 20250902
  Receipt Date: 20251219
  Transmission Date: 20260117
  Serious: Yes (Other)
  Sender: STEMLINE THERAPEUTICS
  Company Number: US-STEMLINE THERAPEUTICS B.V.-2025-STML-US002935

PATIENT

DRUGS (2)
  1. ORSERDU [Suspect]
     Active Substance: ELACESTRANT
     Indication: Breast cancer female
     Dosage: UNK (MG), DAILY
     Route: 065
     Dates: start: 20250724, end: 20250818
  2. ORSERDU [Suspect]
     Active Substance: ELACESTRANT
     Dosage: 1 DOSAGE FORM, DAILY (86MG 4 TABLETS)
     Route: 065

REACTIONS (3)
  - Foreign body in throat [Not Recovered/Not Resolved]
  - Foreign body in gastrointestinal tract [Unknown]
  - Product size issue [Unknown]
